FAERS Safety Report 24698596 (Version 1)
Quarter: 2024Q4

REPORT INFORMATION
  Report Type: Spontaneous
  Country: US (occurrence: US)
  Receive Date: 20241204
  Receipt Date: 20241204
  Transmission Date: 20250114
  Serious: Yes (Other)
  Sender: PIRAMAL
  Company Number: US-PCCINC-2024-PPS-000005

PATIENT

DRUGS (4)
  1. DEFERASIROX [Interacting]
     Active Substance: DEFERASIROX
     Indication: Product used for unknown indication
     Dosage: UNK
  2. MACITENTAN [Interacting]
     Active Substance: MACITENTAN
     Indication: Pulmonary arterial hypertension
     Dosage: UNK
  3. RIOCIGUAT [Interacting]
     Active Substance: RIOCIGUAT
     Indication: Pulmonary arterial hypertension
     Dosage: UNK
  4. SELEXIPAG [Interacting]
     Active Substance: SELEXIPAG
     Indication: Pulmonary arterial hypertension
     Dosage: UNK

REACTIONS (1)
  - Drug interaction [Unknown]
